FAERS Safety Report 18157955 (Version 5)
Quarter: 2021Q3

REPORT INFORMATION
  Report Type: Report from Study
  Country: US (occurrence: US)
  Receive Date: 20200817
  Receipt Date: 20210726
  Transmission Date: 20211014
  Serious: Yes (Hospitalization, Other)
  Sender: FDA-Public Use
  Company Number: NVSC2020US219818

PATIENT
  Sex: Male
  Weight: 16.7 kg

DRUGS (4)
  1. GSK1120212 [Suspect]
     Active Substance: TRAMETINIB
     Indication: LANGERHANS^ CELL HISTIOCYTOSIS
     Dosage: 50% 005 MG
     Route: 048
     Dates: start: 202009
  2. DABRAFENIB [Suspect]
     Active Substance: DABRAFENIB
     Indication: LANGERHANS^ CELL HISTIOCYTOSIS
  3. GSK1120212 [Suspect]
     Active Substance: TRAMETINIB
     Indication: METASTATIC MALIGNANT MELANOMA
     Dosage: 0.5 MG, QD
     Route: 048
     Dates: start: 20191104, end: 20200804
  4. DABRAFENIB [Suspect]
     Active Substance: DABRAFENIB
     Indication: METASTATIC MALIGNANT MELANOMA
     Dosage: 40 MG, BID
     Route: 048
     Dates: start: 20191104, end: 20200804

REACTIONS (10)
  - Pyrexia [Unknown]
  - Sarcoidosis [Unknown]
  - Polyuria [Unknown]
  - Uveitis [Recovering/Resolving]
  - Myelosuppression [Unknown]
  - Lymphadenopathy [Recovering/Resolving]
  - Acute kidney injury [Recovering/Resolving]
  - Polydipsia [Unknown]
  - Hypercalcaemia [Recovered/Resolved]
  - Abdominal distension [Unknown]
